FAERS Safety Report 7336497-7 (Version None)
Quarter: 2011Q1

REPORT INFORMATION
  Report Type: 
  Country: None (occurrence: None)
  Receive Date: 20110307
  Receipt Date: 20110131
  Transmission Date: 20110831
  Serious: No
  Sender: FDA-Public Use
  Company Number: US-AMGEN-USASP2011006032

PATIENT
  Age: 86 Year
  Sex: Male

DRUGS (11)
  1. VIAGRA [Concomitant]
  2. FINASTERIDE [Concomitant]
  3. KETOCONAZOLE [Concomitant]
  4. FOLIC ACID [Concomitant]
  5. HYDROCORTISONE [Concomitant]
  6. STOOL SOFTENER [Concomitant]
  7. CRESTOR [Concomitant]
  8. MIRALAX [Concomitant]
  9. SENOKOT [Concomitant]
  10. XGEVA [Suspect]
     Indication: METASTASES TO BONE
     Dosage: 120 MG, Q4WK
     Dates: start: 20110121
  11. NEXIUM [Concomitant]

REACTIONS (3)
  - BONE PAIN [None]
  - FATIGUE [None]
  - PAIN [None]
